APPROVED DRUG PRODUCT: TEMAZEPAM
Active Ingredient: TEMAZEPAM
Strength: 15MG
Dosage Form/Route: CAPSULE;ORAL
Application: A070383 | Product #001
Applicant: WATSON LABORATORIES INC
Approved: Mar 23, 1987 | RLD: No | RS: No | Type: DISCN